FAERS Safety Report 18636734 (Version 2)
Quarter: 2021Q4

REPORT INFORMATION
  Report Type: Spontaneous
  Country: US (occurrence: US)
  Receive Date: 20201219
  Receipt Date: 20211208
  Transmission Date: 20220304
  Serious: Yes (Other)
  Sender: FDA-Public Use
  Company Number: US-SUN PHARMACEUTICAL INDUSTRIES LTD-2020R1-271859

PATIENT
  Sex: Female

DRUGS (2)
  1. PREDNISONE [Suspect]
     Active Substance: PREDNISONE
     Indication: Rheumatoid arthritis
     Dosage: UNK
     Route: 065
  2. RITUXIMAB [Suspect]
     Active Substance: RITUXIMAB
     Indication: Rheumatoid arthritis
     Dosage: UNK
     Route: 065

REACTIONS (8)
  - Pancreatitis [Recovering/Resolving]
  - Deafness neurosensory [Recovering/Resolving]
  - Panniculitis lobular [Recovering/Resolving]
  - Enterovirus infection [Recovering/Resolving]
  - Abnormal loss of weight [Unknown]
  - Pyrexia [Unknown]
  - Fatigue [Unknown]
  - Myopathy [Recovering/Resolving]
